FAERS Safety Report 19206908 (Version 1)
Quarter: 2021Q2

REPORT INFORMATION
  Report Type: Spontaneous
  Country: DE (occurrence: DE)
  Receive Date: 20210430
  Receipt Date: 20210430
  Transmission Date: 20210717
  Serious: Yes (Death, Hospitalization, Other)
  Sender: FDA-Public Use
  Company Number: DE-GILEAD-2021-0523012

PATIENT
  Age: 76 Year

DRUGS (1)
  1. VEKLURY [Suspect]
     Active Substance: REMDESIVIR
     Indication: COVID-19
     Route: 042

REACTIONS (2)
  - COVID-19 pneumonia [Fatal]
  - Multiple organ dysfunction syndrome [Fatal]
